FAERS Safety Report 24358758 (Version 5)
Quarter: 2024Q4

REPORT INFORMATION
  Report Type: Report from Study
  Country: US (occurrence: US)
  Receive Date: 20240924
  Receipt Date: 20241231
  Transmission Date: 20250115
  Serious: Yes (Other)
  Sender: BOEHRINGER INGELHEIM
  Company Number: US-BoehringerIngelheim-2024-BI-024850

PATIENT
  Age: 71 Year
  Sex: Female

DRUGS (3)
  1. SPEVIGO [Suspect]
     Active Substance: SPESOLIMAB-SBZO
     Indication: Generalised pustular psoriasis
     Dosage: 6 SUBQ DOSES + 1 IV DOSES
     Route: 058
     Dates: start: 20240425
  2. SPEVIGO [Suspect]
     Active Substance: SPESOLIMAB-SBZO
     Route: 058
     Dates: start: 20240820, end: 20240820
  3. Phenylepharine PO TID PRN [Concomitant]
     Indication: Product used for unknown indication
     Route: 048

REACTIONS (19)
  - Generalised pustular psoriasis [Not Recovered/Not Resolved]
  - Excessive cerumen production [Not Recovered/Not Resolved]
  - Procedural headache [Recovered/Resolved]
  - Blood glucose increased [Recovered/Resolved]
  - Productive cough [Not Recovered/Not Resolved]
  - Pustule [Recovered/Resolved]
  - Fatigue [Not Recovered/Not Resolved]
  - Rash [Recovered/Resolved]
  - Ear pain [Recovering/Resolving]
  - Rash [Not Recovered/Not Resolved]
  - Solar lentigo [Unknown]
  - Apathy [Not Recovered/Not Resolved]
  - Asthenia [Not Recovered/Not Resolved]
  - Pustule [Unknown]
  - Abnormal dreams [Unknown]
  - Vomiting [Unknown]
  - Stress [Unknown]
  - Back pain [Unknown]
  - Arthralgia [Unknown]

NARRATIVE: CASE EVENT DATE: 20240424
